FAERS Safety Report 5166673-3 (Version None)
Quarter: 2006Q4

REPORT INFORMATION
  Report Type: 
  Country: None (occurrence: None)
  Receive Date: 20061207
  Receipt Date: 20061123
  Transmission Date: 20070319
  Serious: Yes (Hospitalization)
  Sender: FDA-Public Use
  Company Number: CH-AVENTIS-200622110GDDC

PATIENT
  Age: 79 Year
  Sex: Female

DRUGS (4)
  1. RIFATER [Suspect]
     Indication: PULMONARY TUBERCULOSIS
     Dosage: DOSE: 1 DF
     Route: 048
     Dates: start: 20060830, end: 20060907
  2. RIFATER [Suspect]
     Route: 048
     Dates: start: 20040525, end: 20040529
  3. MYAMBUTOL [Suspect]
     Indication: PULMONARY TUBERCULOSIS
     Route: 048
     Dates: start: 20060830, end: 20060907
  4. ATENOLOL [Concomitant]
     Indication: HYPERTENSION
     Route: 048

REACTIONS (3)
  - HEPATITIS TOXIC [None]
  - HYPOGLYCAEMIA [None]
  - SHOCK [None]
